FAERS Safety Report 22042503 (Version 3)
Quarter: 2023Q1

REPORT INFORMATION
  Report Type: Other
  Country: US (occurrence: US)
  Receive Date: 20230228
  Receipt Date: 20230328
  Transmission Date: 20230418
  Serious: Yes (Hospitalization)
  Sender: FDA-Public Use
  Company Number: US-GBT-020356

PATIENT
  Age: 10 Year
  Sex: Female
  Weight: 26 kg

DRUGS (4)
  1. OXBRYTA [Suspect]
     Active Substance: VOXELOTOR
     Indication: Sickle cell disease
     Dosage: THERAPY WAS RESTARTED AGAIN ABOUT TWO WEEKS AGO.
     Dates: start: 202303
  2. OXBRYTA [Suspect]
     Active Substance: VOXELOTOR
     Indication: Sickle cell disease
     Route: 048
  3. OXBRYTA [Suspect]
     Active Substance: VOXELOTOR
     Indication: Sickle cell disease
     Dates: end: 202303
  4. HYDROXYUREA [Concomitant]
     Active Substance: HYDROXYUREA

REACTIONS (6)
  - Sickle cell anaemia with crisis [Unknown]
  - Rash [Recovering/Resolving]
  - COVID-19 [Unknown]
  - Rash [Recovering/Resolving]
  - Therapy interrupted [Unknown]
  - Urticaria [Unknown]

NARRATIVE: CASE EVENT DATE: 20230215
